FAERS Safety Report 14741892 (Version 1)
Quarter: 2018Q2

REPORT INFORMATION
  Report Type: Spontaneous
  Country: US (occurrence: US)
  Receive Date: 20180404
  Receipt Date: 20180404
  Transmission Date: 20180711
  Serious: No
  Sender: FDA-Public Use
  Company Number: None

PATIENT
  Age: 52 Year
  Sex: Female
  Weight: 74.84 kg

DRUGS (2)
  1. ZITHROMAX [Concomitant]
     Active Substance: AZITHROMYCIN DIHYDRATE
  2. PREDNISONE 10MG TAB CADI [Suspect]
     Active Substance: PREDNISONE
     Indication: PULMONARY CONGESTION
     Dosage: ?          QUANTITY:15 DF DOSAGE FORM;?15PILLS ON BOTTLE BY MOUTH?
     Route: 048
     Dates: start: 20180321, end: 20180322

REACTIONS (3)
  - Haematochezia [None]
  - Confusional state [None]
  - Blood urine present [None]

NARRATIVE: CASE EVENT DATE: 20180321
